FAERS Safety Report 8984726 (Version 2)
Quarter: 2013Q1

REPORT INFORMATION
  Report Type: Spontaneous
  Country: US (occurrence: None)
  Receive Date: 20121217
  Receipt Date: 20121226
  Transmission Date: 20140127
  Serious: Yes (Hospitalization)
  Sender: FDA-Public Use
  Company Number: MPS1-1000860

PATIENT
  Age: 26 Year
  Sex: Male
  Weight: 47.5 kg

DRUGS (1)
  1. ALDURAZYME [Suspect]
     Indication: MUCOPOLYSACCHARIDOSIS I
     Route: 042
     Dates: start: 20040219

REACTIONS (2)
  - Cardiac disorder [None]
  - Atrial septal defect repair [None]
